FAERS Safety Report 14831628 (Version 1)
Quarter: 2018Q2

REPORT INFORMATION
  Report Type: Spontaneous
  Country: US (occurrence: US)
  Receive Date: 20180407
  Receipt Date: 20180407
  Transmission Date: 20180711
  Serious: Yes (Disabling)
  Sender: FDA-Public Use
  Company Number: None

PATIENT
  Age: 30 Year
  Sex: Female
  Weight: 58.5 kg

DRUGS (7)
  1. MACA [Concomitant]
  2. RHODIOLA [Concomitant]
     Active Substance: HERBALS
  3. ASHWAGANDHA [Concomitant]
     Active Substance: HERBALS
  4. OREGANO OIL [Concomitant]
  5. BOTULINUM TOXIN A [Suspect]
     Active Substance: BOTULINUM TOXIN TYPE A
     Indication: SKIN WRINKLING
     Route: 058
     Dates: start: 20180326, end: 20180326
  6. BOTULINUM TOXIN A [Suspect]
     Active Substance: BOTULINUM TOXIN TYPE A
     Indication: MIGRAINE
     Route: 058
     Dates: start: 20180326, end: 20180326
  7. TURMERIC [Concomitant]
     Active Substance: HERBALS\TURMERIC

REACTIONS (11)
  - Incoherent [None]
  - Headache [None]
  - Bradyphrenia [None]
  - Fatigue [None]
  - Palpitations [None]
  - Anxiety [None]
  - Insomnia [None]
  - Vision blurred [None]
  - Hypoaesthesia [None]
  - Disturbance in attention [None]
  - Limb discomfort [None]

NARRATIVE: CASE EVENT DATE: 20180326
